FAERS Safety Report 17946816 (Version 3)
Quarter: 2021Q3

REPORT INFORMATION
  Report Type: Spontaneous
  Country: US (occurrence: US)
  Receive Date: 20200625
  Receipt Date: 20210901
  Transmission Date: 20211014
  Serious: Yes (Disabling, Other)
  Sender: FDA-Public Use
  Company Number: US-AMERICAN REGENT INC-20181210

PATIENT
  Sex: Female
  Weight: 75 kg

DRUGS (4)
  1. INJECTAFER [Suspect]
     Active Substance: FERRIC CARBOXYMALTOSE
     Indication: SERUM FERRITIN DECREASED
     Dosage: 750 MILLIGRAM/ 100 ML NS, SINGLE
     Route: 042
     Dates: start: 20180613, end: 20180613
  2. INJECTAFER [Suspect]
     Active Substance: FERRIC CARBOXYMALTOSE
     Indication: BLOOD IRON DECREASED
  3. LEXAPRO [Concomitant]
     Active Substance: ESCITALOPRAM OXALATE
     Indication: PRODUCT USED FOR UNKNOWN INDICATION
     Dosage: 20 MILLIGRAM, QD
     Route: 048
  4. INJECTAFER [Suspect]
     Active Substance: FERRIC CARBOXYMALTOSE
     Indication: IRON DEFICIENCY ANAEMIA
     Dosage: 750 MILLIGRAM/ 100 ML NS, SINGLE
     Route: 042
     Dates: start: 20180606, end: 20180606

REACTIONS (7)
  - Hypophosphataemia [Recovering/Resolving]
  - Anxiety [Not Recovered/Not Resolved]
  - Anhedonia [Not Recovered/Not Resolved]
  - Product quality issue [Unknown]
  - Pain [Not Recovered/Not Resolved]
  - Partner stress [Not Recovered/Not Resolved]
  - Emotional distress [Not Recovered/Not Resolved]

NARRATIVE: CASE EVENT DATE: 2018
